FAERS Safety Report 4594566-9 (Version None)
Quarter: 2005Q1

REPORT INFORMATION
  Report Type: 
  Country: None (occurrence: None)
  Receive Date: 20050301
  Receipt Date: 20040526
  Transmission Date: 20050727
  Serious: No
  Sender: FDA-Public Use
  Company Number: US-GLAXOSMITHKLINE-A0512213A

PATIENT
  Age: 13 Year
  Sex: Male

DRUGS (2)
  1. VALTREX [Suspect]
     Route: 048
  2. NICOMIDE [Concomitant]

REACTIONS (4)
  - DECREASED APPETITE [None]
  - HEADACHE [None]
  - THERAPEUTIC RESPONSE UNEXPECTED [None]
  - VOMITING [None]
